FAERS Safety Report 5170553-7 (Version None)
Quarter: 2006Q4

REPORT INFORMATION
  Report Type: 
  Country: None (occurrence: None)
  Receive Date: 20061204
  Receipt Date: 20061129
  Transmission Date: 20070319
  Serious: Yes (Death)
  Sender: FDA-Public Use
  Company Number: NLWYE820208JUL05

PATIENT
  Age: 69 Year
  Sex: Female

DRUGS (7)
  1. GEMTUZUMAB OZOGAMICIN (GEMTUZUMAB OZOGAMICIN, INJECTION) [Suspect]
     Indication: ACUTE MYELOID LEUKAEMIA
  2. MITOXANTRONE [Concomitant]
  3. CYTARABINE [Concomitant]
  4. ETOPOSIDE [Concomitant]
  5. VORICONAZOLE (VORICONAZOLE) [Concomitant]
  6. ACYCLOVIR [Concomitant]
  7. VANCOMYCIN [Concomitant]

REACTIONS (8)
  - ASPERGILLOSIS [None]
  - CELLULITIS STREPTOCOCCAL [None]
  - CEREBRAL HAEMORRHAGE [None]
  - HERPES VIRUS INFECTION [None]
  - PNEUMONIA HERPES VIRAL [None]
  - PNEUMONITIS [None]
  - STREPTOCOCCAL BACTERAEMIA [None]
  - THROMBOCYTOPENIA [None]
